FAERS Safety Report 13209124 (Version 2)
Quarter: 2017Q1

REPORT INFORMATION
  Report Type: Spontaneous
  Country: DE (occurrence: DE)
  Receive Date: 20170209
  Receipt Date: 20170327
  Transmission Date: 20170428
  Serious: Yes (Other)
  Sender: FDA-Public Use
  Company Number: DE-PFIZER INC-2017058015

PATIENT
  Age: 68 Year
  Sex: Female

DRUGS (1)
  1. LYRICA [Suspect]
     Active Substance: PREGABALIN
     Indication: NERVOUS SYSTEM DISORDER
     Dosage: UNK
     Dates: start: 2005

REACTIONS (4)
  - Pulmonary oedema [Unknown]
  - Mitral valve disease [Unknown]
  - Myocardial infarction [Unknown]
  - Product use issue [Unknown]

NARRATIVE: CASE EVENT DATE: 2005
